FAERS Safety Report 12969252 (Version 1)
Quarter: 2016Q4

REPORT INFORMATION
  Report Type: Spontaneous
  Country: US (occurrence: US)
  Receive Date: 20161123
  Receipt Date: 20161123
  Transmission Date: 20170207
  Serious: Yes (Other)
  Sender: FDA-Public Use
  Company Number: US-BAYER-2016-223661

PATIENT
  Age: 57 Year
  Sex: Male

DRUGS (1)
  1. MOXIFLOXACIN ORAL [Suspect]
     Active Substance: MOXIFLOXACIN
     Indication: TUBERCULOSIS
     Dosage: UNK
     Route: 048

REACTIONS (4)
  - Off label use [None]
  - Autoimmune hepatitis [Not Recovered/Not Resolved]
  - Hypoxia [None]
  - Treatment noncompliance [None]
